FAERS Safety Report 25899952 (Version 1)
Quarter: 2025Q4

REPORT INFORMATION
  Report Type: Spontaneous
  Country: US (occurrence: US)
  Receive Date: 20251009
  Receipt Date: 20251009
  Transmission Date: 20260117
  Serious: No
  Sender: DR REDDYS
  Company Number: None

PATIENT
  Age: 67 Year
  Sex: Female

DRUGS (7)
  1. DOXYCYCLINE [Suspect]
     Active Substance: DOXYCYCLINE
     Indication: Pemphigoid
  2. PREDNISONE [Concomitant]
     Active Substance: PREDNISONE
     Indication: Pemphigoid
     Dosage: HIGH DOSE
  3. NIACINAMIDE [Concomitant]
     Active Substance: NIACINAMIDE
     Indication: Pemphigoid
  4. CLOBETASOL [Concomitant]
     Active Substance: CLOBETASOL
     Indication: Oral disorder
     Dosage: 0.5% CLOBETASOL OINTMENT TWICE DAILY
  5. CLOBETASOL [Concomitant]
     Active Substance: CLOBETASOL
     Indication: Skin lesion
  6. LIDOCAINE [Concomitant]
     Active Substance: LIDOCAINE
     Indication: Skin lesion
     Dosage: BEFORE MEALS
  7. LIDOCAINE [Concomitant]
     Active Substance: LIDOCAINE
     Indication: Oral disorder

REACTIONS (1)
  - Oesophageal discomfort [Unknown]
